FAERS Safety Report 4358395-3 (Version None)
Quarter: 2004Q2

REPORT INFORMATION
  Report Type: 
  Country: None (occurrence: None)
  Receive Date: 20040514
  Receipt Date: 20010403
  Transmission Date: 20050107
  Serious: Yes (Hospitalization, Congenital Anomaly)
  Sender: FDA-Public Use
  Company Number: FR-ROCHE-258176

PATIENT
  Age: 27 Year
  Sex: Female

DRUGS (7)
  1. CELLCEPT [Suspect]
     Route: 048
     Dates: start: 20000315
  2. CELLCEPT [Suspect]
     Route: 048
     Dates: start: 19991123, end: 19991215
  3. CELLCEPT [Suspect]
     Route: 048
     Dates: start: 19991215, end: 20000115
  4. CELLCEPT [Suspect]
     Route: 048
     Dates: start: 20000115, end: 20000115
  5. FK 506 [Suspect]
     Route: 048
     Dates: start: 19991215
  6. CORTANCYL [Concomitant]
     Route: 048
  7. IMUREL [Concomitant]
     Dates: start: 20010122

REACTIONS (15)
  - ABORTION INDUCED [None]
  - CHORIOAMNIONITIS [None]
  - CLEFT LIP AND PALATE [None]
  - COMPLICATIONS OF MATERNAL EXPOSURE TO THERAPEUTIC DRUGS [None]
  - DRUG TOXICITY [None]
  - ECTOPIC KIDNEY [None]
  - EXTERNAL AUDITORY CANAL ATRESIA [None]
  - HYPERTELORISM OF ORBIT [None]
  - LEUKOPENIA [None]
  - MATERNAL DRUGS AFFECTING FOETUS [None]
  - MICROGNATHIA [None]
  - MICROTIA [None]
  - MULTIPLE CONGENITAL ABNORMALITIES [None]
  - PREGNANCY [None]
  - SEPTUM PELLUCIDUM AGENESIS [None]
